FAERS Safety Report 6148348-7 (Version None)
Quarter: 2009Q2

REPORT INFORMATION
  Report Type: 
  Country: None (occurrence: None)
  Receive Date: 20090408
  Receipt Date: 20090202
  Transmission Date: 20091009
  Serious: No
  Sender: FDA-Public Use
  Company Number: US-BAYER-200913312NA

PATIENT
  Age: 55 Year
  Sex: Male

DRUGS (1)
  1. MAGNEVIST [Suspect]
     Indication: NUCLEAR MAGNETIC RESONANCE IMAGING
     Dosage: MANUAL INJECTION TO ARM INJECTION SITE, LINE FLUSHED
     Route: 042
     Dates: start: 20090202, end: 20090202

REACTIONS (1)
  - RASH [None]
